FAERS Safety Report 6998582-9 (Version None)
Quarter: 2010Q3

REPORT INFORMATION
  Report Type: 
  Country: None (occurrence: None)
  Receive Date: 20100920
  Receipt Date: 20070710
  Transmission Date: 20110219
  Serious: Yes (Other)
  Sender: FDA-Public Use
  Company Number: US-ASTRAZENECA-2006UW22135

PATIENT
  Age: 14887 Day
  Sex: Female
  Weight: 83.9 kg

DRUGS (5)
  1. SEROQUEL [Suspect]
     Indication: MAJOR DEPRESSION
     Dosage: 100 MG - 300 MG DISPENSED
     Route: 048
     Dates: start: 20030519
  2. SEROQUEL [Suspect]
     Route: 048
     Dates: start: 20061121
  3. TRAZODONE HCL [Concomitant]
     Dosage: 50 MG - 150 MG
     Dates: start: 19990701
  4. EFFEXOR XR [Concomitant]
     Dates: start: 20040607
  5. SINGULAIR [Concomitant]
     Dates: start: 20060711

REACTIONS (2)
  - HYPERGLYCAEMIA [None]
  - INTENTIONAL OVERDOSE [None]
